FAERS Safety Report 16759220 (Version 2)
Quarter: 2019Q3

REPORT INFORMATION
  Report Type: Spontaneous
  Country: NL (occurrence: CN)
  Receive Date: 20190830
  Receipt Date: 20190918
  Transmission Date: 20191005
  Serious: Yes (Death, Hospitalization, Other)
  Sender: FDA-Public Use
  Company Number: CN-ASTELLAS-2019US034551

PATIENT
  Age: 57 Year
  Sex: Male

DRUGS (4)
  1. TACROLIMUS. [Suspect]
     Active Substance: TACROLIMUS
     Indication: LIVER TRANSPLANT
     Dosage: UNK UNK, UNKNOWN FREQ.
     Route: 065
  2. IMIPENEM [Concomitant]
     Active Substance: IMIPENEM
     Indication: ANTIBIOTIC PROPHYLAXIS
     Dosage: UNK UNK, UNKNOWN FREQ.
     Route: 065
  3. MYCOPHENOLATE MOFETIL. [Suspect]
     Active Substance: MYCOPHENOLATE MOFETIL
     Indication: LIVER TRANSPLANT
     Dosage: UNK UNK, UNKNOWN FREQ.
     Route: 065
  4. GANCICLOVIR. [Concomitant]
     Active Substance: GANCICLOVIR
     Indication: ANTIBIOTIC PROPHYLAXIS
     Dosage: UNK UNK, UNKNOWN FREQ.
     Route: 065

REACTIONS (5)
  - Pneumonia [Fatal]
  - Vascular graft complication [Unknown]
  - Klebsiella infection [Unknown]
  - Abdominal infection [Fatal]
  - Acute kidney injury [Unknown]
